FAERS Safety Report 15834659 (Version 4)
Quarter: 2020Q3

REPORT INFORMATION
  Report Type: Report from Study
  Country: HN (occurrence: HN)
  Receive Date: 20190116
  Receipt Date: 20200714
  Transmission Date: 20201102
  Serious: Yes (Hospitalization, Other)
  Sender: FDA-Public Use
  Company Number: PHHY2019HN007513

PATIENT
  Age: 67 Year
  Sex: Female

DRUGS (3)
  1. INSULIN [Concomitant]
     Active Substance: INSULIN NOS
     Indication: PRODUCT USED FOR UNKNOWN INDICATION
     Dosage: 10 U, QD
     Route: 065
  2. DIOVAN [Suspect]
     Active Substance: VALSARTAN
     Indication: PRODUCT USED FOR UNKNOWN INDICATION
     Dosage: 320 MG (STARTED 10 YEARS AGO AND STOPPED 3 YEARS AGO)
     Route: 065
  3. VYMADA [Suspect]
     Active Substance: SACUBITRIL\VALSARTAN
     Indication: CARDIAC FAILURE
     Dosage: 200 MG (STARTED 3 YEARS AGO)
     Route: 065

REACTIONS (10)
  - Cardiac failure [Unknown]
  - Fracture [Unknown]
  - Fluid retention [Unknown]
  - Blood pressure increased [Unknown]
  - Inflammation [Unknown]
  - Cardiac disorder [Unknown]
  - Dysuria [Unknown]
  - Urinary tract infection [Unknown]
  - Illness [Unknown]
  - Fatigue [Unknown]

NARRATIVE: CASE EVENT DATE: 201901
